FAERS Safety Report 8454318-6 (Version None)
Quarter: 2012Q2

REPORT INFORMATION
  Report Type: 
  Country: None (occurrence: None)
  Receive Date: 20120620
  Receipt Date: 20120618
  Transmission Date: 20120825
  Serious: Yes (Other)
  Sender: FDA-Public Use
  Company Number: US-AMGEN-USASP2012037725

PATIENT
  Age: 64 Year
  Sex: Female

DRUGS (13)
  1. SIMVASTATIN [Concomitant]
     Dosage: UNK
  2. OMEPRAZOLE [Concomitant]
     Dosage: UNK
  3. LANTUS [Concomitant]
     Dosage: UNK
  4. FOLIC ACID [Concomitant]
     Dosage: UNK
  5. ZYRTEC [Concomitant]
     Dosage: UNK
  6. METFORMIN HCL [Concomitant]
     Dosage: UNK
  7. LOSARTAN POTASSIUM [Concomitant]
     Dosage: UNK MG, UNK
  8. GABAPENTIN [Concomitant]
     Dosage: UNK
  9. HYDROXYCHLOROQUINE SULFATE [Concomitant]
     Dosage: UNK
  10. NOVOLOG [Concomitant]
     Dosage: UNK
  11. ENBREL [Suspect]
     Indication: PRODUCT USED FOR UNKNOWN INDICATION
     Dosage: 50 MG, QWK
     Dates: start: 20110501, end: 20120101
  12. HYDROCHLOROTHIAZIDE [Concomitant]
     Dosage: UNK
  13. VITAMIN D [Concomitant]
     Dosage: UNK

REACTIONS (1)
  - BREAST CANCER [None]
